FAERS Safety Report 14771247 (Version 1)
Quarter: 2018Q2

REPORT INFORMATION
  Report Type: Spontaneous
  Country: US (occurrence: US)
  Receive Date: 20180417
  Receipt Date: 20180417
  Transmission Date: 20180711
  Serious: No
  Sender: FDA-Public Use
  Company Number: US-ALLERGAN-1752722US

PATIENT
  Age: 54 Year
  Sex: Female

DRUGS (2)
  1. LATISSE [Suspect]
     Active Substance: BIMATOPROST
     Indication: PRODUCT USED FOR UNKNOWN INDICATION
     Dosage: UNK
     Route: 061
     Dates: start: 201708
  2. LATISSE [Suspect]
     Active Substance: BIMATOPROST
     Dosage: UNK, QHS
     Route: 061
     Dates: start: 201702, end: 201705

REACTIONS (4)
  - Drug hypersensitivity [Unknown]
  - Inappropriate schedule of drug administration [Unknown]
  - Erythema of eyelid [Unknown]
  - Eye irritation [Unknown]

NARRATIVE: CASE EVENT DATE: 201703
